FAERS Safety Report 9529755 (Version 4)
Quarter: 2014Q1

REPORT INFORMATION
  Report Type: Report from Study
  Country: CA (occurrence: CA)
  Receive Date: 20130917
  Receipt Date: 20140217
  Transmission Date: 20141002
  Serious: Yes (Other)
  Sender: FDA-Public Use
  Company Number: CA-ROCHE-1276769

PATIENT
  Age: 51 Year
  Sex: Female
  Weight: 47.6 kg

DRUGS (8)
  1. RITUXAN [Suspect]
     Indication: RHEUMATOID ARTHRITIS
     Dosage: FREQUENCY:  DAY 1 AND DAY 15
     Route: 042
     Dates: start: 20070921
  2. DIPHENHYDRAMINE HCL [Concomitant]
     Indication: PREMEDICATION
     Route: 048
     Dates: start: 20110923
  3. ACETAMINOPHEN [Concomitant]
     Indication: PREMEDICATION
     Route: 048
     Dates: start: 20110923
  4. METHYLPREDNISOLONE [Concomitant]
     Indication: PREMEDICATION
     Route: 042
     Dates: start: 20110923
  5. DILANTIN [Concomitant]
  6. PAXIL [Concomitant]
  7. PARIET [Concomitant]
  8. ENTROPHEN [Concomitant]

REACTIONS (4)
  - Osteoporosis [Not Recovered/Not Resolved]
  - Weight decreased [Not Recovered/Not Resolved]
  - Rheumatoid arthritis [Unknown]
  - Stress [Unknown]
